FAERS Safety Report 7716820-1 (Version None)
Quarter: 2011Q3

REPORT INFORMATION
  Report Type: 
  Country: None (occurrence: None)
  Receive Date: 20110829
  Receipt Date: 20110817
  Transmission Date: 20111222
  Serious: Yes (Hospitalization)
  Sender: FDA-Public Use
  Company Number: US-VALEANT-2011VX002459

PATIENT
  Age: 84 Year
  Sex: Male

DRUGS (2)
  1. ACTONEL [Concomitant]
     Route: 065
  2. CHLORDIAZEPOXIDE HYDROCHLORIDE/CLIDINIUM BROMIDE [Suspect]
     Route: 048
     Dates: end: 20110816

REACTIONS (1)
  - ATRIOVENTRICULAR BLOCK [None]
